FAERS Safety Report 25003330 (Version 2)
Quarter: 2025Q2

REPORT INFORMATION
  Report Type: Report from Study
  Country: BR (occurrence: BR)
  Receive Date: 20250224
  Receipt Date: 20250401
  Transmission Date: 20250717
  Serious: Yes (Hospitalization)
  Sender: UCB
  Company Number: BR-UCBSA-2025010222

PATIENT
  Sex: Female
  Weight: 8.5 kg

DRUGS (3)
  1. LEVETIRACETAM [Suspect]
     Active Substance: LEVETIRACETAM
     Indication: Epilepsy
     Dosage: 0.5 MILLILITER, 2X/12 HOURS
     Route: 048
     Dates: start: 202405
  2. LEVETIRACETAM [Suspect]
     Active Substance: LEVETIRACETAM
     Dosage: 1.8 MILLILITER, 2X/12 HOURS
     Route: 048
     Dates: start: 20250218
  3. VIMPAT [Suspect]
     Active Substance: LACOSAMIDE
     Indication: Epilepsy
     Dosage: 4 MILLILITER, 2X/12 HOURS
     Route: 048
     Dates: start: 202501

REACTIONS (3)
  - Seizure [Not Recovered/Not Resolved]
  - 1p36 deletion syndrome [Not Recovered/Not Resolved]
  - Drug ineffective [Unknown]

NARRATIVE: CASE EVENT DATE: 20240101
